FAERS Safety Report 6266997-2 (Version None)
Quarter: 2009Q3

REPORT INFORMATION
  Report Type: 
  Country: None (occurrence: None)
  Receive Date: 20090714
  Receipt Date: 20090702
  Transmission Date: 20100115
  Serious: Yes (Hospitalization, Other)
  Sender: FDA-Public Use
  Company Number: PHHO2008US14660

PATIENT
  Sex: Male
  Weight: 84.3 kg

DRUGS (33)
  1. STI571/CGP57148B T35717+TAB [Suspect]
     Indication: CHRONIC MYELOID LEUKAEMIA
     Dosage: 400 MG, QD
     Route: 048
     Dates: start: 20071116
  2. STI571/CGP57148B T35717+TAB [Suspect]
     Dosage: NO TREATMENT
     Dates: start: 20080424, end: 20080501
  3. STI571/CGP57148B T35717+TAB [Suspect]
     Dosage: 400 MG, QD
     Dates: start: 20080502
  4. STI571/CGP57148B T35717+TAB [Suspect]
     Dosage: NO TREATMENT
     Dates: start: 20081221, end: 20081223
  5. STI571/CGP57148B T35717+TAB [Suspect]
     Dosage: 400 MG
     Route: 048
     Dates: start: 20081224, end: 20090506
  6. AMN107 AMN+CAP [Suspect]
     Indication: CHRONIC MYELOID LEUKAEMIA
     Dosage: 800 MG, QD
     Route: 048
     Dates: start: 20090619, end: 20090624
  7. AMIODARONE HCL [Suspect]
  8. CHEMOTHERAPEUTICS NOS [Suspect]
  9. DIOVAN [Concomitant]
  10. SYNTHROID [Concomitant]
  11. POTASSIUM CHLORIDE [Concomitant]
  12. LASIX [Concomitant]
  13. TOPROL-XL [Concomitant]
  14. CARDURA [Concomitant]
  15. LIPITOR [Concomitant]
  16. NIASPAN [Concomitant]
  17. ASPIRIN [Concomitant]
  18. OMEPRAZOLE [Concomitant]
  19. NORVASC [Concomitant]
  20. ALLOPURINOL [Concomitant]
  21. NEURONTIN [Concomitant]
  22. VICODIN [Concomitant]
  23. LIDODERM [Concomitant]
  24. COMPAZINE [Concomitant]
  25. MEGACE [Concomitant]
  26. FLOMAX [Concomitant]
  27. PRILOSEC [Concomitant]
  28. AMLODIPINE [Concomitant]
  29. CLONIDINE [Concomitant]
  30. MULTI-VITAMINS [Concomitant]
  31. ASCORBIC ACID [Concomitant]
  32. BYSTOLIC [Concomitant]
  33. FUROSEMIDE [Concomitant]

REACTIONS (43)
  - ABDOMINAL PAIN UPPER [None]
  - ANAEMIA [None]
  - ASTHENIA [None]
  - ATELECTASIS [None]
  - BETA HAEMOLYTIC STREPTOCOCCAL INFECTION [None]
  - BLOOD PRESSURE ABNORMAL [None]
  - BREATH SOUNDS ABNORMAL [None]
  - CARDIAC FAILURE CONGESTIVE [None]
  - CHEST DISCOMFORT [None]
  - CHEST PAIN [None]
  - CHRONIC MYELOID LEUKAEMIA [None]
  - CONSTIPATION [None]
  - COUGH [None]
  - DEEP VEIN THROMBOSIS [None]
  - DEHYDRATION [None]
  - DYSPEPSIA [None]
  - DYSPNOEA [None]
  - ELECTROCARDIOGRAM QT PROLONGED [None]
  - FALL [None]
  - FATIGUE [None]
  - HAEMOLYTIC URAEMIC SYNDROME [None]
  - HERPES ZOSTER [None]
  - HYPOPERFUSION [None]
  - JOINT INJURY [None]
  - LEFT VENTRICULAR HYPERTROPHY [None]
  - LETHARGY [None]
  - LUNG DISORDER [None]
  - LUNG INFILTRATION [None]
  - MYOCARDIAL ISCHAEMIA [None]
  - OEDEMA PERIPHERAL [None]
  - PERFORMANCE STATUS DECREASED [None]
  - PLASMAPHERESIS [None]
  - PLEURAL EFFUSION [None]
  - POST HERPETIC NEURALGIA [None]
  - PULMONARY OEDEMA [None]
  - PYREXIA [None]
  - RENAL FAILURE CHRONIC [None]
  - RESPIRATORY DISTRESS [None]
  - SEPSIS [None]
  - SINUS ARRHYTHMIA [None]
  - THROMBOCYTOPENIA [None]
  - URINARY HESITATION [None]
  - WEIGHT DECREASED [None]
